FAERS Safety Report 24069014 (Version 1)
Quarter: 2024Q3

REPORT INFORMATION
  Report Type: Report from Study
  Country: US (occurrence: US)
  Receive Date: 20240710
  Receipt Date: 20240710
  Transmission Date: 20241016
  Serious: No
  Sender: ROCHE
  Company Number: US-ROCHE-3426833

PATIENT
  Age: 71 Year
  Sex: Female

DRUGS (6)
  1. ALECENSA [Suspect]
     Active Substance: ALECTINIB HYDROCHLORIDE
     Indication: Lung neoplasm malignant
     Dosage: 4 CAPSULES ORALLY, TWICE A DAILY
     Route: 048
     Dates: start: 20200928
  2. FLONASE [Concomitant]
     Active Substance: FLUTICASONE PROPIONATE
  3. SHINGRIX [Concomitant]
     Active Substance: RECOMBINANT VARICELLA ZOSTER VIRUS (VZV) GLYCOPROTEIN E
  4. DYAZIDE [Concomitant]
     Active Substance: HYDROCHLOROTHIAZIDE\TRIAMTERENE
  5. FISH OIL [Concomitant]
     Active Substance: FISH OIL
  6. ATIVAN [Concomitant]
     Active Substance: LORAZEPAM

REACTIONS (2)
  - Off label use [Unknown]
  - No adverse event [Unknown]
